FAERS Safety Report 13176412 (Version 1)
Quarter: 2017Q1

REPORT INFORMATION
  Report Type: Spontaneous
  Country: US (occurrence: US)
  Receive Date: 20170201
  Receipt Date: 20170201
  Transmission Date: 20170428
  Serious: Yes (Hospitalization)
  Sender: FDA-Public Use
  Company Number: US-INGENUS PHARMACEUTICALS NJ, LLC-ING201701-000027

PATIENT
  Age: 34 Year
  Sex: Male

DRUGS (4)
  1. CARISOPRODOL. [Suspect]
     Active Substance: CARISOPRODOL
  2. CARISOPRODOL. [Suspect]
     Active Substance: CARISOPRODOL
  3. CARISOPRODOL. [Suspect]
     Active Substance: CARISOPRODOL
  4. CARISOPRODOL. [Suspect]
     Active Substance: CARISOPRODOL

REACTIONS (16)
  - Sinus tachycardia [Unknown]
  - Drug abuse [Unknown]
  - Overdose [Unknown]
  - Paranoia [Unknown]
  - Drug withdrawal syndrome [Unknown]
  - Delusion [Unknown]
  - Loss of consciousness [Unknown]
  - Seizure [Recovering/Resolving]
  - Muscle twitching [Recovered/Resolved]
  - Drug dependence [Unknown]
  - Agitation [Unknown]
  - Mental status changes [Recovered/Resolved]
  - Vomiting [Unknown]
  - Cyanosis [Unknown]
  - Hypoxia [Recovered/Resolved]
  - Respiratory distress [Unknown]
